FAERS Safety Report 24966082 (Version 1)
Quarter: 2025Q1

REPORT INFORMATION
  Report Type: Spontaneous
  Country: US (occurrence: None)
  Receive Date: 20250212
  Receipt Date: 20250212
  Transmission Date: 20250409
  Serious: Yes (Hospitalization)
  Sender: FDA-CTU
  Company Number: None

PATIENT
  Age: 87 Year
  Sex: Male

DRUGS (4)
  1. METOPROLOL SUCCINATE [Suspect]
     Active Substance: METOPROLOL SUCCINATE
  2. AMITRIPTYLINE HYDROCHLORIDE [Suspect]
     Active Substance: AMITRIPTYLINE HYDROCHLORIDE
  3. APIXABAN [Suspect]
     Active Substance: APIXABAN
  4. PRAZOSIN [Suspect]
     Active Substance: PRAZOSIN

REACTIONS (4)
  - Hypotension [None]
  - Palpitations [None]
  - Accidental overdose [None]
  - Heart rate irregular [None]

NARRATIVE: CASE EVENT DATE: 20240716
